FAERS Safety Report 9722401 (Version 1)
Quarter: 2013Q4

REPORT INFORMATION
  Report Type: Report from Study
  Country: PL (occurrence: PL)
  Receive Date: 20131202
  Receipt Date: 20131202
  Transmission Date: 20140711
  Serious: Yes (Hospitalization, Other)
  Sender: FDA-Public Use
  Company Number: PHHY2013PL137876

PATIENT
  Age: 59 Year
  Sex: Female

DRUGS (1)
  1. TASIGNA [Suspect]
     Indication: CHRONIC MYELOID LEUKAEMIA
     Dosage: 400 MG, BID
     Route: 048
     Dates: start: 20111117

REACTIONS (7)
  - Liver disorder [Unknown]
  - Atrial fibrillation [Unknown]
  - Pyrexia [Unknown]
  - Malaise [Unknown]
  - Lung infiltration [Unknown]
  - Pericardial effusion [Unknown]
  - Pleural effusion [Unknown]
